FAERS Safety Report 6910732-9 (Version None)
Quarter: 2010Q3

REPORT INFORMATION
  Report Type: 
  Country: None (occurrence: None)
  Receive Date: 20100806
  Receipt Date: 20100723
  Transmission Date: 20110219
  Serious: Yes (Hospitalization)
  Sender: FDA-Public Use
  Company Number: IT-BAYER-201034302GPV

PATIENT
  Age: 55 Year
  Sex: Male

DRUGS (16)
  1. CAMPATH [Suspect]
     Indication: PERIPHERAL T-CELL LYMPHOMA UNSPECIFIED
     Dosage: 2 CYCLES C-CHOP, ON DAY 1 EVERY 3 WEEKS
     Route: 058
     Dates: start: 20090313
  2. PREDNISONE [Suspect]
     Indication: PERIPHERAL T-CELL LYMPHOMA UNSPECIFIED
     Dosage: DAYS 1-5 PER C-CHOP CYCLE EVERY 3 WEEKS
     Route: 048
     Dates: start: 20090313
  3. DOXORUBICIN HCL [Suspect]
     Indication: PERIPHERAL T-CELL LYMPHOMA UNSPECIFIED
     Dosage: 2 C-CHOP CYCLES, ON DAY 1 EVERY 3 WEEKS
     Dates: start: 20090313
  4. VINCRISTINE [Suspect]
     Indication: PERIPHERAL T-CELL LYMPHOMA UNSPECIFIED
     Dosage: 2 C-CHOP CYCLES, ON DAY 1 EVERY 3 WEEKS
     Dates: start: 20090313
  5. CYCLOPHOSPHAMIDE [Suspect]
     Indication: PERIPHERAL T-CELL LYMPHOMA UNSPECIFIED
     Dosage: 2 C-CHOP CYCLES, ON DAY 1 EVERY 3 WEEKS
     Dates: start: 20090313
  6. CYCLOPHOSPHAMIDE [Suspect]
     Dosage: 1 CYCLE HYPER-C-HIDAM
  7. METHOTREXATE [Suspect]
     Indication: PERIPHERAL T-CELL LYMPHOMA UNSPECIFIED
     Dosage: 2 APPLICATIONS EVERY 3 WEEKS
     Route: 037
     Dates: start: 20090313
  8. METHOTREXATE [Suspect]
     Dosage: 1 CYCLE HYPER-C-HIDAM
  9. ARA-C [Suspect]
     Indication: PERIPHERAL T-CELL LYMPHOMA UNSPECIFIED
     Dosage: 2 APPLICATIONS EVERY 3 WEEKS
     Route: 037
     Dates: start: 20090313
  10. ARA-C [Suspect]
     Dosage: 1 CYCLE OF HYPER-C-HIDAM
  11. DEXAMETHASONE [Suspect]
     Indication: PERIPHERAL T-CELL LYMPHOMA UNSPECIFIED
     Dosage: 2 APPLICATIONS EVERY 3 WEEKS
     Route: 037
     Dates: start: 20090313
  12. NEUPOGEN [Suspect]
     Indication: PERIPHERAL T-CELL LYMPHOMA UNSPECIFIED
     Dosage: FIRST CYCLE HYPER-C-HIDAM, STARTING FROM DAY +5
  13. RABEPRAZOLE SODIUM [Concomitant]
     Indication: PROPHYLAXIS
     Route: 048
     Dates: start: 20090311
  14. ZYLORIC [Concomitant]
     Indication: HYPERURICAEMIA
     Route: 048
     Dates: start: 20090311
  15. METFORMIN HCL [Concomitant]
     Indication: DIABETES MELLITUS
     Route: 048
     Dates: start: 20090311
  16. ACYCLOVIR [Concomitant]
     Indication: PROPHYLAXIS
     Route: 048
     Dates: start: 20090311

REACTIONS (12)
  - CEREBELLAR ATAXIA [None]
  - CEREBELLAR SYNDROME [None]
  - CLOSTRIDIUM DIFFICILE COLITIS [None]
  - CYTOMEGALOVIRUS INFECTION [None]
  - DYSARTHRIA [None]
  - ENTEROCOCCAL SEPSIS [None]
  - NEUROTOXICITY [None]
  - PANCREATITIS ACUTE [None]
  - PNEUMOCYSTIS JIROVECI PNEUMONIA [None]
  - PYREXIA [None]
  - STAPHYLOCOCCAL SEPSIS [None]
  - URINARY BLADDER HAEMORRHAGE [None]
